FAERS Safety Report 9718376 (Version 1)
Quarter: 2013Q4

REPORT INFORMATION
  Report Type: Spontaneous
  Country: US (occurrence: US)
  Receive Date: 20131125
  Receipt Date: 20131125
  Transmission Date: 20140711
  Serious: No
  Sender: FDA-Public Use
  Company Number: US-VIVUS-2013V1000304

PATIENT
  Age: 61 Year
  Sex: Female
  Weight: 79 kg

DRUGS (8)
  1. QSYMIA [Suspect]
     Indication: WEIGHT DECREASED
     Dates: start: 201302, end: 201302
  2. WELLBUTRIN [Concomitant]
     Indication: DEPRESSION
     Route: 048
  3. SYNTHROID [Concomitant]
     Indication: HYPOTHYROIDISM
     Route: 048
  4. COREG [Concomitant]
     Indication: HYPERTENSION
     Route: 048
     Dates: start: 2010
  5. ELAVIL [Concomitant]
     Indication: SLEEP DISORDER
     Route: 048
     Dates: start: 201303
  6. ACIPHEX [Concomitant]
     Indication: GASTROOESOPHAGEAL REFLUX DISEASE
     Route: 048
  7. MULTIVITAMIN [Concomitant]
     Indication: VITAMIN SUPPLEMENTATION
     Route: 048
  8. CITRACAL [Concomitant]
     Indication: MINERAL SUPPLEMENTATION
     Route: 048

REACTIONS (5)
  - Dyspnoea [Recovered/Resolved]
  - Hyperhidrosis [Recovered/Resolved]
  - Flushing [Recovered/Resolved]
  - Palpitations [Recovered/Resolved]
  - Urinary tract infection [Recovered/Resolved]
